FAERS Safety Report 20902633 (Version 1)
Quarter: 2022Q2

REPORT INFORMATION
  Report Type: Report from Study
  Country: AU (occurrence: AU)
  Receive Date: 20220601
  Receipt Date: 20220601
  Transmission Date: 20220721
  Serious: Yes (Other)
  Sender: FDA-Public Use
  Company Number: AU-ABBVIE-22K-008-4416542-00

PATIENT
  Sex: Male

DRUGS (1)
  1. LEUPROLIDE ACETATE [Suspect]
     Active Substance: LEUPROLIDE ACETATE
     Indication: Prostate cancer
     Route: 030
     Dates: start: 20220203

REACTIONS (8)
  - Hepatectomy [Unknown]
  - Mobility decreased [Not Recovered/Not Resolved]
  - Nerve injury [Not Recovered/Not Resolved]
  - Bedridden [Recovering/Resolving]
  - Post procedural complication [Not Recovered/Not Resolved]
  - Insomnia [Not Recovered/Not Resolved]
  - Infection [Recovering/Resolving]
  - Asthenia [Not Recovered/Not Resolved]

NARRATIVE: CASE EVENT DATE: 20220101
